FAERS Safety Report 6086544-8 (Version None)
Quarter: 2009Q1

REPORT INFORMATION
  Report Type: 
  Country: None (occurrence: None)
  Receive Date: 20090223
  Receipt Date: 20090213
  Transmission Date: 20090719
  Serious: Yes (Hospitalization)
  Sender: FDA-Public Use
  Company Number: JP-BRISTOL-MYERS SQUIBB COMPANY-14483903

PATIENT
  Age: 68 Year
  Sex: Male
  Weight: 46 kg

DRUGS (2)
  1. ERBITUX [Suspect]
     Indication: COLORECTAL CANCER RECURRENT
     Dosage: 1ST:3DEC08:580MG/M2 2ND:11DEC:360MG/M2 3RD:19DEC 4TH:26DEC 5TH:9JAN09:360MG/M2 6TH:22JAN09
     Route: 041
     Dates: start: 20081203, end: 20081203
  2. IRINOTECAN HCL [Suspect]
     Indication: COLORECTAL CANCER RECURRENT
     Dosage: 1ST INF:03DEC08 2ND INF:19DEC08;180MG MOST RECENT INF: 09JAN09
     Route: 042
     Dates: start: 20081203

REACTIONS (2)
  - ANOREXIA [None]
  - NAUSEA [None]
